FAERS Safety Report 5549735-8 (Version None)
Quarter: 2007Q4

REPORT INFORMATION
  Report Type: 
  Country: None (occurrence: None)
  Receive Date: 20071212
  Receipt Date: 20071210
  Transmission Date: 20080405
  Serious: Yes (Other)
  Sender: FDA-Public Use
  Company Number: PHNU2007DE04131

PATIENT
  Age: 69 Year
  Sex: Female

DRUGS (1)
  1. ESTRADOT [Suspect]
     Route: 062
     Dates: start: 20070801, end: 20071101

REACTIONS (3)
  - DIPLOPIA [None]
  - EXTRAOCULAR MUSCLE PARESIS [None]
  - EYE MOVEMENT DISORDER [None]
